FAERS Safety Report 12744869 (Version 2)
Quarter: 2016Q3

REPORT INFORMATION
  Report Type: Report from Study
  Country: US (occurrence: US)
  Receive Date: 20160915
  Receipt Date: 20160922
  Transmission Date: 20161109
  Serious: Yes (Death, Other)
  Sender: FDA-Public Use
  Company Number: US-ALEXION-A201606718

PATIENT
  Sex: Male

DRUGS (1)
  1. SOLIRIS [Suspect]
     Active Substance: ECULIZUMAB
     Indication: HAEMOLYTIC URAEMIC SYNDROME
     Dosage: UNK
     Route: 042

REACTIONS (10)
  - Contusion [Unknown]
  - Urine abnormality [Unknown]
  - Grey Turner^s sign [Fatal]
  - Bilirubin urine present [Unknown]
  - Platelet count decreased [Unknown]
  - Protein urine present [Unknown]
  - Neutrophil count decreased [Unknown]
  - Blood urine present [Unknown]
  - Glucose urine [Unknown]
  - Confusional state [Unknown]
